FAERS Safety Report 7332456-9 (Version None)
Quarter: 2011Q1

REPORT INFORMATION
  Report Type: 
  Country: None (occurrence: None)
  Receive Date: 20110304
  Receipt Date: 20110222
  Transmission Date: 20110831
  Serious: Yes (Life-Threatening, Other)
  Sender: FDA-Public Use
  Company Number: DE-BRISTOL-MYERS SQUIBB COMPANY-15499643

PATIENT
  Age: 59 Year
  Sex: Male

DRUGS (6)
  1. ATORVASTATIN CALCIUM [Concomitant]
     Dates: start: 20101230
  2. MAGNESIUM [Concomitant]
     Dates: start: 20101230
  3. ASPIRIN [Concomitant]
     Dates: start: 20101230
  4. COAPROVEL FILM-COATED TABS [Suspect]
     Indication: HYPERTENSION
     Dosage: PTC NO:1000463120 1-0-0
     Route: 048
  5. NEBIVOLOL HCL [Suspect]
     Indication: HYPERTENSION
     Dosage: 1-0-0
     Route: 048
  6. EZETROL [Concomitant]
     Dates: start: 20101230

REACTIONS (2)
  - BLOOD PRESSURE INCREASED [None]
  - PRODUCT COUNTERFEIT [None]
